FAERS Safety Report 7509281-9 (Version None)
Quarter: 2011Q2

REPORT INFORMATION
  Report Type: 
  Country: None (occurrence: None)
  Receive Date: 20110527
  Receipt Date: 20110520
  Transmission Date: 20111010
  Serious: Yes (Other)
  Sender: FDA-Public Use
  Company Number: JP-ROCHE-773012

PATIENT
  Sex: Male

DRUGS (3)
  1. AVASTIN [Suspect]
     Indication: LUNG NEOPLASM MALIGNANT
     Dosage: DOSAGE IS UNCERTAIN
     Route: 041
     Dates: start: 20100525, end: 20110404
  2. CARBOPLATIN [Concomitant]
     Dosage: DOSAGE IS UNCERTAIN
     Route: 041
     Dates: start: 20100525
  3. PACLITAXEL [Concomitant]
     Dosage: DOSAGE IS UNCERTAIN
     Route: 041
     Dates: start: 20100525

REACTIONS (1)
  - LIVER FUNCTION TEST ABNORMAL [None]
